FAERS Safety Report 10594219 (Version 1)
Quarter: 2014Q4

REPORT INFORMATION
  Report Type: Spontaneous
  Country: US (occurrence: US)
  Receive Date: 20141119
  Receipt Date: 20141119
  Transmission Date: 20150529
  Serious: Yes (Hospitalization, Other)
  Sender: FDA-Public Use
  Company Number: US-ABBVIE-14P-163-1309287-00

PATIENT
  Sex: Male

DRUGS (1)
  1. ANDROGEL [Suspect]
     Active Substance: TESTOSTERONE
     Indication: BLOOD TESTOSTERONE DECREASED
     Route: 061
     Dates: start: 200910, end: 2013

REACTIONS (5)
  - Cerebrovascular accident [Unknown]
  - Pain [Unknown]
  - Emotional distress [Unknown]
  - Cardiovascular disorder [Unknown]
  - Injury [Unknown]

NARRATIVE: CASE EVENT DATE: 201304
